FAERS Safety Report 13656790 (Version 1)
Quarter: 2017Q2

REPORT INFORMATION
  Report Type: Spontaneous
  Country: AU (occurrence: AU)
  Receive Date: 20170615
  Receipt Date: 20170615
  Transmission Date: 20170830
  Serious: No
  Sender: FDA-Public Use
  Company Number: W1-ALLERGAN-1712719US

PATIENT
  Sex: Male

DRUGS (1)
  1. OXYBUTYNIN UNK [Suspect]
     Active Substance: OXYBUTYNIN
     Indication: STRESS URINARY INCONTINENCE
     Dosage: 3.9 MG, UNK
     Route: 062
     Dates: start: 20170118

REACTIONS (2)
  - Product adhesion issue [Unknown]
  - Application site haemorrhage [Unknown]
